FAERS Safety Report 4399208-3 (Version None)
Quarter: 2004Q3

REPORT INFORMATION
  Report Type: 
  Country: None (occurrence: None)
  Receive Date: 20040715
  Receipt Date: 20040715
  Transmission Date: 20050211
  Serious: Yes (Other)
  Sender: FDA-Public Use
  Company Number: None

PATIENT
  Age: 45 Year
  Sex: Female
  Weight: 95.2554 kg

DRUGS (2)
  1. GAMMAGARD [Suspect]
     Indication: PERIPHERAL MOTOR NEUROPATHY
     Dosage: 90 GRAMS IV
     Route: 042
     Dates: start: 20040712, end: 20040714
  2. GAMMAGARD [Suspect]
     Indication: SARCOIDOSIS
     Dosage: 90 GRAMS IV
     Route: 042
     Dates: start: 20040712, end: 20040714

REACTIONS (4)
  - BODY TEMPERATURE INCREASED [None]
  - PAIN IN EXTREMITY [None]
  - PERIPHERAL COLDNESS [None]
  - SKIN DISCOLOURATION [None]
